FAERS Safety Report 16649535 (Version 1)
Quarter: 2019Q3

REPORT INFORMATION
  Report Type: Spontaneous
  Country: US (occurrence: US)
  Receive Date: 20190730
  Receipt Date: 20190730
  Transmission Date: 20191004
  Serious: Yes (Life-Threatening, Other)
  Sender: FDA-Public Use
  Company Number: US-AKRON, INC.-2071505

PATIENT
  Age: 73 Year
  Sex: Male

DRUGS (1)
  1. EPTIFIBATIDE INJECTION [Suspect]
     Active Substance: EPTIFIBATIDE
     Indication: CATHETERISATION CARDIAC
     Route: 042

REACTIONS (8)
  - Thrombocytopenia [Recovered/Resolved]
  - Hypoxia [Recovered/Resolved]
  - Hypotension [Recovered/Resolved]
  - Liver disorder [Recovered/Resolved]
  - Thrombosis [Recovered/Resolved]
  - Disseminated intravascular coagulation [Recovered/Resolved]
  - Dizziness [Recovered/Resolved]
  - Acute kidney injury [Recovered/Resolved]
